FAERS Safety Report 4629133-1 (Version None)
Quarter: 2005Q2

REPORT INFORMATION
  Report Type: 
  Country: None (occurrence: None)
  Receive Date: 20050407
  Receipt Date: 20050207
  Transmission Date: 20051028
  Serious: Yes (Hospitalization, Other)
  Sender: FDA-Public Use
  Company Number: 200511313GDDC

PATIENT
  Age: 28 Year
  Sex: Female

DRUGS (12)
  1. RIFADIN [Suspect]
     Indication: LYMPH NODE TUBERCULOSIS
     Dates: start: 20011015, end: 20011123
  2. TEBRAZID [Suspect]
     Indication: LYMPH NODE TUBERCULOSIS
     Dates: start: 20011015
  3. ISONIAZID [Suspect]
     Indication: LYMPH NODE TUBERCULOSIS
     Route: 048
     Dates: start: 20011015, end: 20011123
  4. ETHAMBUTOL HCL [Suspect]
     Indication: LYMPH NODE TUBERCULOSIS
     Dates: start: 20011015
  5. CIPROFLOXACIN [Suspect]
     Indication: LYMPH NODE TUBERCULOSIS
     Route: 048
     Dates: start: 20011115
  6. AMIKACIN [Concomitant]
  7. PYRIDOXINE HCL [Concomitant]
     Dates: start: 20011015
  8. LEVOFLOXACIN [Concomitant]
  9. STREPTOMYCIN [Concomitant]
     Dates: start: 20020107
  10. TACROLIMUS [Concomitant]
     Dosage: DOSE: FK 506
  11. MYCOPHENOLATE MOFETIL [Concomitant]
  12. PREDNISONE [Concomitant]

REACTIONS (21)
  - ALANINE AMINOTRANSFERASE INCREASED [None]
  - ASCITES [None]
  - ASPARTATE AMINOTRANSFERASE INCREASED [None]
  - BLOOD ALKALINE PHOSPHATASE INCREASED [None]
  - BLOOD BILIRUBIN INCREASED [None]
  - DIZZINESS [None]
  - ENCEPHALOPATHY [None]
  - EOSINOPHILIA [None]
  - GAMMA-GLUTAMYLTRANSFERASE INCREASED [None]
  - HEPATIC NECROSIS [None]
  - HEPATOMEGALY [None]
  - HYPOTENSION [None]
  - INTERNATIONAL NORMALISED RATIO INCREASED [None]
  - LEUKOCYTOSIS [None]
  - NAUSEA [None]
  - OEDEMA [None]
  - PROTHROMBIN LEVEL DECREASED [None]
  - PYREXIA [None]
  - RASH MACULO-PAPULAR [None]
  - TACHYCARDIA [None]
  - VOMITING [None]
